FAERS Safety Report 5377892-5 (Version None)
Quarter: 2007Q2

REPORT INFORMATION
  Report Type: 
  Country: None (occurrence: None)
  Receive Date: 20070629
  Receipt Date: 20070625
  Transmission Date: 20071010
  Serious: Yes (Death, Hospitalization)
  Sender: FDA-Public Use
  Company Number: 2007BI012045

PATIENT
  Age: 61 Year
  Sex: Female

DRUGS (3)
  1. AVONEX [Suspect]
     Indication: MULTIPLE SCLEROSIS
     Dosage: ; IM
     Route: 030
     Dates: start: 20010101
  2. LEVOXYL [Concomitant]
  3. BACLOFEN [Concomitant]

REACTIONS (11)
  - CLUMSINESS [None]
  - DECUBITUS ULCER [None]
  - DIZZINESS [None]
  - HYPOTHYROIDIC GOITRE [None]
  - MICROCYTIC ANAEMIA [None]
  - MUSCULAR WEAKNESS [None]
  - NECK PAIN [None]
  - ORAL LICHEN PLANUS [None]
  - PARAESTHESIA [None]
  - PARAPLEGIA [None]
  - VERTIGO [None]
